FAERS Safety Report 21573064 (Version 1)
Quarter: 2022Q4

REPORT INFORMATION
  Report Type: Spontaneous
  Country: FR (occurrence: FR)
  Receive Date: 20221109
  Receipt Date: 20221109
  Transmission Date: 20230113
  Serious: Yes (Life-Threatening, Hospitalization)
  Sender: FDA-Public Use
  Company Number: None

PATIENT
  Age: 66 Year
  Sex: Male
  Weight: 87.2 kg

DRUGS (7)
  1. CLINDAMYCIN [Suspect]
     Active Substance: CLINDAMYCIN
     Indication: General anaesthesia
     Dosage: 1 DF, SINGLE
     Route: 042
     Dates: start: 20161202, end: 20161202
  2. PROPOFOL [Suspect]
     Active Substance: PROPOFOL
     Indication: General anaesthesia
     Dosage: 1 DF, SINGLE
     Route: 042
     Dates: start: 20161202, end: 20161202
  3. HYDROCORTISONE [Suspect]
     Active Substance: HYDROCORTISONE
     Indication: General anaesthesia
     Dosage: 1 DF, SINGLE
     Route: 042
     Dates: start: 20161202, end: 20161202
  4. GENTAMICIN SULFATE [Suspect]
     Active Substance: GENTAMICIN SULFATE
     Indication: General anaesthesia
     Dosage: 1 DF, SINGLE
     Route: 042
     Dates: start: 20161202, end: 20161202
  5. SUCCINYLCHOLINE CHLORIDE [Suspect]
     Active Substance: SUCCINYLCHOLINE CHLORIDE
     Indication: General anaesthesia
     Dosage: 1 DF, SINGLE
     Route: 042
     Dates: start: 20161202, end: 20161202
  6. SUFENTA [Suspect]
     Active Substance: SUFENTANIL CITRATE
     Indication: General anaesthesia
     Dosage: 1 DF, SINGLE
     Route: 042
     Dates: start: 20161202, end: 20161202
  7. KETAMINE [Suspect]
     Active Substance: KETAMINE
     Indication: General anaesthesia
     Dosage: 1 DF, SINGLE
     Route: 042
     Dates: start: 20161202, end: 20161202

REACTIONS (3)
  - Cardiac arrest [Recovered/Resolved]
  - Anaphylactic shock [Recovered/Resolved]
  - Allergy test positive [Recovered/Resolved]

NARRATIVE: CASE EVENT DATE: 20161202
